FAERS Safety Report 8108437-4 (Version None)
Quarter: 2012Q1

REPORT INFORMATION
  Report Type: 
  Country: None (occurrence: None)
  Receive Date: 20120202
  Receipt Date: 20120131
  Transmission Date: 20120608
  Serious: No
  Sender: FDA-Public Use
  Company Number: PHEH2012US002759

PATIENT
  Sex: Female

DRUGS (12)
  1. MULTI-VITAMIN [Concomitant]
     Dosage: UNK UKN, UNK
  2. VITAMIN D [Concomitant]
     Dosage: UNK UKN, UNK
  3. CALCIUM [Concomitant]
     Dosage: UNK UKN, UNK
  4. TRAMADOL HCL [Suspect]
     Indication: ARTHRITIS
     Dosage: UNK UKN, UNK
  5. TASIGNA [Suspect]
     Dosage: 200 MG, BID
     Route: 048
  6. GLEEVEC [Suspect]
     Dosage: 600 MG/DAY
  7. NEURONTIN [Concomitant]
     Indication: NEUROPATHY PERIPHERAL
     Dosage: UNK UKN, UNK
  8. FISH OIL [Concomitant]
     Dosage: UNK UKN, UNK
  9. BUMEX [Concomitant]
     Dosage: UNK UKN, UNK
  10. FOLIC ACID [Concomitant]
     Dosage: UNK UKN, UNK
  11. TRAMADOL HCL [Suspect]
     Indication: BACK DISORDER
  12. ROPINIROLE [Concomitant]
     Indication: RESTLESS LEGS SYNDROME
     Dosage: UNK UKN, UNK

REACTIONS (1)
  - RASH [None]
